FAERS Safety Report 15000322 (Version 1)
Quarter: 2018Q2

REPORT INFORMATION
  Report Type: Report from Study
  Country: IT (occurrence: IT)
  Receive Date: 20180612
  Receipt Date: 20180612
  Transmission Date: 20180711
  Serious: Yes (Hospitalization)
  Sender: FDA-Public Use
  Company Number: IT-TEVA-2018-IT-904206

PATIENT
  Age: 78 Year
  Sex: Female

DRUGS (7)
  1. METOPROLOL. [Interacting]
     Active Substance: METOPROLOL
     Route: 065
  2. INFLUENZA VIRUS VACCINE TRIVALENT [Concomitant]
     Active Substance: INFLUENZA VIRUS VACCINE TRIVALENT TYPE A+B
     Indication: IMMUNISATION
     Route: 065
  3. ITRACONAZOLE. [Interacting]
     Active Substance: ITRACONAZOLE
     Route: 065
  4. RAMIPRIL. [Interacting]
     Active Substance: RAMIPRIL
     Route: 065
  5. ACETYLSALICYLIC ACID [Interacting]
     Active Substance: ASPIRIN
     Route: 065
  6. SIMVASTATIN. [Suspect]
     Active Substance: SIMVASTATIN
     Route: 065
  7. ENOXAPARIN [Interacting]
     Active Substance: ENOXAPARIN
     Route: 065

REACTIONS (3)
  - Drug interaction [Unknown]
  - Rhabdomyolysis [Unknown]
  - Skin candida [Unknown]
